FAERS Safety Report 7497241-6 (Version None)
Quarter: 2011Q2

REPORT INFORMATION
  Report Type: 
  Country: None (occurrence: None)
  Receive Date: 20110523
  Receipt Date: 20110520
  Transmission Date: 20111010
  Serious: Yes (Other)
  Sender: FDA-Public Use
  Company Number: US-PFIZER INC-2011109871

PATIENT
  Sex: Female
  Weight: 58.957 kg

DRUGS (3)
  1. ENTOCORT EC [Concomitant]
     Indication: GASTROINTESTINAL DISORDER
     Dosage: UNK
  2. CALCIUM [Concomitant]
     Indication: OSTEOPOROSIS
     Dosage: UNK
  3. CELEBREX [Suspect]
     Indication: OSTEOPOROSIS
     Dosage: 200 MG, 2X/DAY
     Route: 048

REACTIONS (2)
  - OSTEOPOROSIS [None]
  - DRUG INEFFECTIVE [None]
